FAERS Safety Report 16601110 (Version 2)
Quarter: 2019Q3

REPORT INFORMATION
  Report Type: Spontaneous
  Country: JP (occurrence: JP)
  Receive Date: 20190719
  Receipt Date: 20190729
  Transmission Date: 20191004
  Serious: Yes (Other)
  Sender: FDA-Public Use
  Company Number: JP-PFIZER INC-2019299330

PATIENT
  Age: 7 Decade
  Sex: Male

DRUGS (7)
  1. DOCETAXEL. [Concomitant]
     Active Substance: DOCETAXEL
     Indication: OESOPHAGEAL ADENOCARCINOMA
     Dosage: 40 MG/M2, CYCLIC (ON DAY 1,EVERY 28 DAYS)
  2. PACLITAXEL. [Suspect]
     Active Substance: PACLITAXEL
     Indication: OESOPHAGEAL ADENOCARCINOMA
     Dosage: 80 MG/M2, CYCLIC (DAYS 1, 8 AND 15, EVERY 28DAYS)
  3. RAMUCIRUMAB [Concomitant]
     Active Substance: RAMUCIRUMAB
     Indication: OESOPHAGEAL ADENOCARCINOMA
     Dosage: 8 MG/KG, CYCLIC (DAYS 1 AND 15, EVERY 28 DAYS)
  4. CISPLATIN. [Concomitant]
     Active Substance: CISPLATIN
     Indication: OESOPHAGEAL ADENOCARCINOMA
     Dosage: 60 MG/M2, CYCLIC (ON DAY 1,EVERY 28 DAYS)
  5. TS-1 [Concomitant]
     Active Substance: GIMERACIL\OTERACIL\TEGAFUR
     Indication: OESOPHAGEAL ADENOCARCINOMA
     Dosage: 80 MG/M2, CYCLIC (ON DAYS 1-14, EVERY 28 DAYS)
  6. TS-1 [Concomitant]
     Active Substance: GIMERACIL\OTERACIL\TEGAFUR
     Dosage: 120 MG/M2, CYCLIC (ON DAYS 1-21, EVERY 35 DAYS)
  7. CISPLATIN. [Concomitant]
     Active Substance: CISPLATIN
     Dosage: 60 MG/M2, CYCLIC (ON DAYS 8 FOR EVERY 35 DAYS)

REACTIONS (4)
  - Diarrhoea [Unknown]
  - Neuropathy peripheral [Unknown]
  - Product use in unapproved indication [Unknown]
  - Off label use [Unknown]
